FAERS Safety Report 18992045 (Version 5)
Quarter: 2021Q3

REPORT INFORMATION
  Report Type: Report from Study
  Country: US (occurrence: US)
  Receive Date: 20210310
  Receipt Date: 20210920
  Transmission Date: 20211014
  Serious: Yes (Hospitalization, Other)
  Sender: FDA-Public Use
  Company Number: US-TAKEDA-2021TUS014724

PATIENT
  Age: 73 Year
  Sex: Female

DRUGS (1)
  1. PONATINIB [Suspect]
     Active Substance: PONATINIB
     Indication: CHRONIC MYELOID LEUKAEMIA
     Dosage: 15 MILLIGRAM, QOD
     Route: 065
     Dates: start: 20201104

REACTIONS (14)
  - Cholecystitis [Not Recovered/Not Resolved]
  - Fall [Unknown]
  - Gastrointestinal disorder [Unknown]
  - Fatigue [Unknown]
  - Cholecystitis infective [Not Recovered/Not Resolved]
  - Urinary tract infection [Unknown]
  - Abdominal pain [Unknown]
  - Pain [Unknown]
  - Rib fracture [Unknown]
  - Muscle spasms [Unknown]
  - Parkinson^s disease [Unknown]
  - Insomnia [Unknown]
  - Gallbladder disorder [Unknown]
  - Gait disturbance [Unknown]

NARRATIVE: CASE EVENT DATE: 20210722
